FAERS Safety Report 14602726 (Version 2)
Quarter: 2018Q1

REPORT INFORMATION
  Report Type: Spontaneous
  Country: FR (occurrence: FR)
  Receive Date: 20180306
  Receipt Date: 20180329
  Transmission Date: 20180509
  Serious: Yes (Other)
  Sender: FDA-Public Use
  Company Number: FR-ASTRAZENECA-2018SE24857

PATIENT
  Age: 69 Year
  Sex: Female

DRUGS (3)
  1. VENTOLIN [Concomitant]
     Active Substance: ALBUTEROL SULFATE
     Indication: PRODUCT USED FOR UNKNOWN INDICATION
  2. ACETYLCYSTEINE. [Suspect]
     Active Substance: ACETYLCYSTEINE
     Indication: BRONCHITIS
     Dosage: UNK, TWO TIMES A DAY
     Route: 050
     Dates: start: 20171013, end: 20171020
  3. BUDESONIDE. [Suspect]
     Active Substance: BUDESONIDE
     Indication: BRONCHITIS
     Dosage: UNK, TWO TIMES A DAY
     Route: 045
     Dates: start: 20171013, end: 20171020

REACTIONS (3)
  - Cough [Recovered/Resolved]
  - Off label use [Unknown]
  - Irritability [Recovered/Resolved]
